FAERS Safety Report 9928281 (Version 1)
Quarter: 2014Q1

REPORT INFORMATION
  Report Type: Spontaneous
  Country: US (occurrence: None)
  Receive Date: 20140226
  Receipt Date: 20140226
  Transmission Date: 20141002
  Serious: Yes (Disabling)
  Sender: FDA-Public Use
  Company Number: None

PATIENT
  Age: 52 Year
  Sex: Female
  Weight: 56.7 kg

DRUGS (2)
  1. DULOXETINE [Suspect]
     Indication: DEPRESSION
     Dosage: 1 PER DAY ONCE DAILY TAKEN BY MOUTH
     Route: 048
     Dates: start: 20131230, end: 20140224
  2. DULOXETINE [Suspect]
     Indication: HEADACHE
     Dosage: 1 PER DAY ONCE DAILY TAKEN BY MOUTH
     Route: 048
     Dates: start: 20131230, end: 20140224

REACTIONS (6)
  - Depression [None]
  - Feeling abnormal [None]
  - Anxiety [None]
  - Headache [None]
  - Drug withdrawal syndrome [None]
  - Drug ineffective [None]
